FAERS Safety Report 20176876 (Version 2)
Quarter: 2021Q4

REPORT INFORMATION
  Report Type: Spontaneous
  Country: CN (occurrence: CN)
  Receive Date: 20211213
  Receipt Date: 20211221
  Transmission Date: 20220304
  Serious: Yes (Hospitalization)
  Sender: FDA-Public Use
  Company Number: CN-FERRINGPH-2021FE07725

PATIENT
  Age: 42 Year
  Sex: Female
  Weight: 48.5 kg

DRUGS (3)
  1. DECAPEPTYL (ACETATE) [Suspect]
     Active Substance: TRIPTORELIN ACETATE
     Indication: Ovulation induction
     Dosage: 0.1 MG, 2 TIMES DAILY
     Route: 058
     Dates: start: 20211128, end: 20211128
  2. DECAPEPTYL (ACETATE) [Suspect]
     Active Substance: TRIPTORELIN ACETATE
     Dosage: 0.1 MG
     Route: 058
     Dates: start: 20211128, end: 20211128
  3. CHORIONIC GONADOTROPHIN [Suspect]
     Active Substance: CHORIOGONADOTROPIN ALFA
     Indication: Infertility
     Dosage: 7000 IU, POWDER FOR INJECTION
     Route: 030
     Dates: start: 20211128, end: 20211128

REACTIONS (7)
  - Syncope [Recovered/Resolved]
  - Fall [Recovered/Resolved]
  - Mass [Recovered/Resolved]
  - Dizziness [Recovered/Resolved]
  - Injection site pain [Recovered/Resolved]
  - Overdose [Recovered/Resolved]
  - Off label use [Recovered/Resolved]

NARRATIVE: CASE EVENT DATE: 20211128
